FAERS Safety Report 6787767-2 (Version None)
Quarter: 2010Q2

REPORT INFORMATION
  Report Type: 
  Country: None (occurrence: None)
  Receive Date: 20100621
  Receipt Date: 20100607
  Transmission Date: 20101027
  Serious: Yes (Hospitalization)
  Sender: FDA-Public Use
  Company Number: 1000014553

PATIENT
  Age: 39 Year
  Sex: Female

DRUGS (11)
  1. CITALOPRAM HYDROBROMIDE [Suspect]
     Dosage: 40 MG (40 MG, 1 IN 1 D), ORAL
     Route: 048
     Dates: start: 20100101
  2. TRUXAL [Suspect]
     Dosage: 100 MG (100 MG, 1 IN 1 D), ORAL
     Route: 048
     Dates: start: 20100222, end: 20100316
  3. FLUPENTIXOL [Suspect]
     Dosage: 5 MG (5 MG, 1 IN 1 D), ORAL
     Route: 048
     Dates: start: 20100218, end: 20100222
  4. FLUPENTIXOL [Suspect]
     Dosage: 10 MG (10 MG, 1 IN 1 D), ORAL
     Route: 048
     Dates: start: 20100223, end: 20100314
  5. LYRICA [Concomitant]
  6. METFORMIN HCL [Concomitant]
  7. HCT HEXAL [Concomitant]
  8. ROHYPNOL [Concomitant]
  9. DOXEPIN HCL [Concomitant]
  10. ATOSIL [Concomitant]
  11. DOMINAL [Concomitant]

REACTIONS (4)
  - BRUXISM [None]
  - DRUG INTERACTION [None]
  - DYSKINESIA [None]
  - TREMOR [None]
